FAERS Safety Report 25052409 (Version 4)
Quarter: 2025Q1

REPORT INFORMATION
  Report Type: Report from Study
  Country: US (occurrence: US)
  Receive Date: 20250307
  Receipt Date: 20250325
  Transmission Date: 20250409
  Serious: Yes (Life-Threatening, Hospitalization, Other)
  Sender: AMGEN
  Company Number: US-AMGEN-USASL2023051276

PATIENT
  Age: 73 Year
  Sex: Female

DRUGS (4)
  1. AIMOVIG [Suspect]
     Active Substance: ERENUMAB-AOOE
     Indication: Migraine with aura
     Dosage: 140 MILLIGRAM, QMO
     Route: 058
     Dates: start: 20190416
  2. AIMOVIG [Suspect]
     Active Substance: ERENUMAB-AOOE
     Dosage: 140 MILLIGRAM, QMO
     Route: 058
  3. TYLENOL [Concomitant]
     Active Substance: ACETAMINOPHEN
     Indication: Migraine
  4. NURTEC ODT [Concomitant]
     Active Substance: RIMEGEPANT SULFATE
     Indication: Migraine

REACTIONS (25)
  - Pneumonia [Unknown]
  - COVID-19 [Not Recovered/Not Resolved]
  - Gastrointestinal perforation [Unknown]
  - Cerebrovascular accident [Unknown]
  - Visual impairment [Unknown]
  - Loss of consciousness [Unknown]
  - Deafness [Unknown]
  - Migraine [Not Recovered/Not Resolved]
  - Chemical poisoning [Unknown]
  - Ill-defined disorder [Unknown]
  - Therapeutic product effect decreased [Unknown]
  - Memory impairment [Unknown]
  - Impaired driving ability [Unknown]
  - Rotator cuff syndrome [Unknown]
  - Thermal burn [Unknown]
  - Oropharyngeal pain [Unknown]
  - Nausea [Unknown]
  - Headache [Not Recovered/Not Resolved]
  - Fall [Unknown]
  - Gastrointestinal disorder [Unknown]
  - Speech disorder [Unknown]
  - Tremor [Unknown]
  - Alopecia [Unknown]
  - Therapy interrupted [Unknown]
  - Incorrect disposal of product [Unknown]

NARRATIVE: CASE EVENT DATE: 20220101
